FAERS Safety Report 5577888-4 (Version None)
Quarter: 2007Q4

REPORT INFORMATION
  Report Type: 
  Country: None (occurrence: None)
  Receive Date: 20071227
  Receipt Date: 20071219
  Transmission Date: 20080405
  Serious: Yes (Death, Hospitalization)
  Sender: FDA-Public Use
  Company Number: 2007BI009497

PATIENT
  Age: 63 Year
  Sex: Female

DRUGS (5)
  1. NATALIZUMAB [Suspect]
     Indication: MULTIPLE SCLEROSIS
     Dosage: 300 MG; QM; IV
     Route: 042
     Dates: start: 20061229, end: 20070201
  2. LEVOXYL [Concomitant]
  3. BONIVA [Concomitant]
  4. AMBIEN [Concomitant]
  5. NOVANTRONE [Concomitant]

REACTIONS (9)
  - CSF PROTEIN INCREASED [None]
  - FATIGUE [None]
  - MULTIPLE SCLEROSIS RELAPSE [None]
  - NERVOUS SYSTEM DISORDER [None]
  - NEUROMYELITIS OPTICA [None]
  - PNEUMONIA [None]
  - QUADRIPLEGIA [None]
  - SPINAL CORD DISORDER [None]
  - URINARY TRACT INFECTION [None]
